FAERS Safety Report 4284751-8 (Version None)
Quarter: 2004Q1

REPORT INFORMATION
  Report Type: 
  Country: None (occurrence: None)
  Receive Date: 20040130
  Receipt Date: 20040108
  Transmission Date: 20041129
  Serious: Yes (Other)
  Sender: FDA-Public Use
  Company Number: US_040199776

PATIENT
  Age: 47 Year
  Sex: Female

DRUGS (1)
  1. GEMCITABINE HYDROCHLORIDE-IV [Suspect]
     Indication: ADENOCARCINOMA PANCREAS
     Dosage: 1000 MG/M2/WEEK

REACTIONS (5)
  - ADENOCARCINOMA PANCREAS [None]
  - DRUG TOXICITY [None]
  - METASTASES TO LYMPH NODES [None]
  - PANCREATIC CARCINOMA RECURRENT [None]
  - REFUSAL OF TREATMENT BY PATIENT [None]
